FAERS Safety Report 22245426 (Version 1)
Quarter: 2023Q2

REPORT INFORMATION
  Report Type: Spontaneous
  Country: US (occurrence: US)
  Receive Date: 20230424
  Receipt Date: 20230424
  Transmission Date: 20230721
  Serious: Yes (Other)
  Sender: FDA-Public Use
  Company Number: US-drreddys-LIT/USA/23/0163982

PATIENT
  Age: 73 Year
  Sex: Female

DRUGS (5)
  1. PYRIDOXINE HYDROCHLORIDE [Suspect]
     Active Substance: PYRIDOXINE HYDROCHLORIDE
     Indication: Neuropathy peripheral
  2. GLUTAMINE [Suspect]
     Active Substance: GLUTAMINE
     Indication: Neuropathy peripheral
  3. .ALPHA.-LIPOIC ACID [Suspect]
     Active Substance: .ALPHA.-LIPOIC ACID
     Indication: Neuropathy peripheral
  4. NIRAPARIB [Suspect]
     Active Substance: NIRAPARIB
     Indication: Product used for unknown indication
  5. NIRAPARIB [Suspect]
     Active Substance: NIRAPARIB

REACTIONS (8)
  - Neutropenia [Unknown]
  - Neuropathy peripheral [Unknown]
  - Ovarian cancer stage IV [Unknown]
  - Drug ineffective for unapproved indication [Unknown]
  - Diarrhoea [Unknown]
  - Anaemia [Unknown]
  - Hypomagnesaemia [Unknown]
  - Nausea [Unknown]
